FAERS Safety Report 23546457 (Version 3)
Quarter: 2024Q1

REPORT INFORMATION
  Report Type: Report from Study
  Country: JP (occurrence: JP)
  Receive Date: 20240220
  Receipt Date: 20240321
  Transmission Date: 20240409
  Serious: Yes (Hospitalization)
  Sender: FDA-Public Use
  Company Number: JP-PFIZER INC-PV202400022998

PATIENT
  Age: 4 Month
  Sex: Female
  Weight: 6.13 kg

DRUGS (2)
  1. SIROLIMUS [Suspect]
     Active Substance: SIROLIMUS
     Indication: Lymphatic malformation
     Dosage: 0.3 MG, DAILY (0.3 MG,1 D)
     Route: 048
     Dates: start: 20220912, end: 20221205
  2. SIROLIMUS [Suspect]
     Active Substance: SIROLIMUS
     Dosage: 0.4 MG, DAILY (0.4 MG,1 D)
     Route: 048
     Dates: start: 20221206, end: 20230117

REACTIONS (1)
  - Moraxella infection [Recovered/Resolved]

NARRATIVE: CASE EVENT DATE: 20221209
